FAERS Safety Report 25064781 (Version 1)
Quarter: 2025Q1

REPORT INFORMATION
  Report Type: Spontaneous
  Country: US (occurrence: US)
  Receive Date: 20250311
  Receipt Date: 20250311
  Transmission Date: 20250409
  Serious: No
  Sender: Unknown Manufacturer
  Company Number: US-NEURELIS-USNEU24000624

PATIENT

DRUGS (7)
  1. VALTOCO [Suspect]
     Active Substance: DIAZEPAM
     Indication: Epilepsy
     Route: 045
  2. VALTOCO [Suspect]
     Active Substance: DIAZEPAM
     Indication: Tonic convulsion
  3. EPIDIOLEX [Concomitant]
     Active Substance: CANNABIDIOL
     Indication: Product used for unknown indication
     Route: 048
  4. DEPAKOTE [Concomitant]
     Active Substance: DIVALPROEX SODIUM
     Indication: Product used for unknown indication
     Route: 048
  5. CLONAZEPAM [Concomitant]
     Active Substance: CLONAZEPAM
     Indication: Product used for unknown indication
     Route: 048
  6. XCOPRI [Concomitant]
     Active Substance: CENOBAMATE
     Indication: Product used for unknown indication
     Route: 048
  7. FINTEPLA [Concomitant]
     Active Substance: FENFLURAMINE
     Indication: Product used for unknown indication

REACTIONS (1)
  - Therapeutic product effect delayed [Unknown]
